FAERS Safety Report 9124771 (Version 1)
Quarter: 2013Q1

REPORT INFORMATION
  Report Type: Spontaneous
  Country: BR (occurrence: BR)
  Receive Date: 20130116
  Receipt Date: 20130116
  Transmission Date: 20140127
  Serious: Yes (Hospitalization, Other)
  Sender: FDA-Public Use
  Company Number: PHHY2013BR003090

PATIENT
  Sex: Female
  Weight: 19 kg

DRUGS (2)
  1. EXJADE [Suspect]
     Indication: SICKLE CELL ANAEMIA
     Dosage: 1 DF, DAILY
     Route: 048
     Dates: start: 20121204, end: 20121209
  2. FOLIC ACID [Concomitant]
     Dosage: 1 UNK, UNK

REACTIONS (1)
  - Splenomegaly [Recovered/Resolved]
